FAERS Safety Report 9840474 (Version 1)
Quarter: 2014Q1

REPORT INFORMATION
  Report Type: Report from Study
  Country: CA (occurrence: CA)
  Receive Date: 20140124
  Receipt Date: 20140124
  Transmission Date: 20141002
  Serious: Yes (Other)
  Sender: FDA-Public Use
  Company Number: CA-JNJFOC-20140110332

PATIENT
  Age: 25 Year
  Sex: Female
  Weight: 90 kg

DRUGS (4)
  1. REMICADE [Suspect]
     Indication: CROHN^S DISEASE
     Route: 042
  2. IMURAN [Concomitant]
     Route: 065
  3. NOVORAPID [Concomitant]
     Route: 065
  4. LEVEMIR [Concomitant]
     Dosage: DOSE 23 U
     Route: 065

REACTIONS (2)
  - Fall [Unknown]
  - Wrist fracture [Unknown]
